FAERS Safety Report 6180291-X (Version None)
Quarter: 2009Q2

REPORT INFORMATION
  Report Type: 
  Country: None (occurrence: None)
  Receive Date: 20090506
  Receipt Date: 20090501
  Transmission Date: 20091009
  Serious: No
  Sender: FDA-Public Use
  Company Number: US-RANBAXY-2009US-23109

PATIENT

DRUGS (2)
  1. ISOTRETINOIN [Suspect]
     Indication: DRUG USE FOR UNKNOWN INDICATION
     Dosage: 20 MG, UNK
     Route: 048
     Dates: start: 20081201, end: 20090201
  2. ISOTRETINOIN [Suspect]
     Dosage: 40 MG, UNK
     Route: 048
     Dates: start: 20081201, end: 20090201

REACTIONS (1)
  - LIP DRY [None]
